FAERS Safety Report 13707216 (Version 4)
Quarter: 2018Q2

REPORT INFORMATION
  Report Type: Report from Study
  Country: US (occurrence: US)
  Receive Date: 20170630
  Receipt Date: 20180502
  Transmission Date: 20180711
  Serious: No
  Sender: FDA-Public Use
  Company Number: PHEH2017US019768

PATIENT
  Sex: Female

DRUGS (1)
  1. GLEEVEC [Suspect]
     Active Substance: IMATINIB MESYLATE
     Indication: PRODUCT USED FOR UNKNOWN INDICATION
     Dosage: 400 MG, QD
     Route: 065

REACTIONS (8)
  - Peripheral swelling [Unknown]
  - Flatulence [Unknown]
  - Product quality issue [Unknown]
  - Gastric disorder [Unknown]
  - Ocular hyperaemia [Unknown]
  - Headache [Unknown]
  - Chest pain [Unknown]
  - Malaise [Unknown]
